FAERS Safety Report 4546287-6 (Version None)
Quarter: 2005Q1

REPORT INFORMATION
  Report Type: 
  Country: None (occurrence: None)
  Receive Date: 20050106
  Receipt Date: 20041230
  Transmission Date: 20050727
  Serious: Yes (Hospitalization, Disabling)
  Sender: FDA-Public Use
  Company Number: SE-MERCK-0501SWE00003

PATIENT
  Age: 53 Year
  Sex: Male

DRUGS (3)
  1. VIOXX [Suspect]
     Indication: OSTEOARTHRITIS
     Route: 048
     Dates: start: 20010924, end: 20020109
  2. ENALAPRIL MALEATE [Concomitant]
     Route: 065
  3. METFORMIN HYDROCHLORIDE [Concomitant]
     Route: 065

REACTIONS (1)
  - CEREBRAL ARTERY EMBOLISM [None]
